FAERS Safety Report 5021254-7 (Version None)
Quarter: 2006Q2

REPORT INFORMATION
  Report Type: 
  Country: None (occurrence: None)
  Receive Date: 20060608
  Receipt Date: 20050111
  Transmission Date: 20061013
  Serious: Yes (Hospitalization, Disabling, Other)
  Sender: FDA-Public Use
  Company Number: PT-SANOFI-SYNTHELABO-F01200500046

PATIENT
  Sex: Male

DRUGS (4)
  1. ESTAZOLAM [Concomitant]
     Dates: start: 20051105
  2. BEVACIZUMAB OR PLACEBO [Suspect]
     Route: 042
     Dates: start: 20041222, end: 20041222
  3. CAPECITABINE [Suspect]
     Dosage: 1800MG TWICE DAILY FOR 2 WEEKS, Q3W
     Route: 048
     Dates: start: 20041222
  4. OXALIPLATIN [Suspect]
     Indication: COLORECTAL CANCER METASTATIC
     Route: 042
     Dates: start: 20041222, end: 20041222

REACTIONS (4)
  - BACTERIAL INFECTION [None]
  - NEUTROPHIL COUNT DECREASED [None]
  - PLATELET COUNT DECREASED [None]
  - RENAL FAILURE ACUTE [None]
